FAERS Safety Report 12808367 (Version 1)
Quarter: 2016Q4

REPORT INFORMATION
  Report Type: Spontaneous
  Country: US (occurrence: US)
  Receive Date: 20161004
  Receipt Date: 20161004
  Transmission Date: 20170207
  Serious: Yes (Hospitalization)
  Sender: FDA-Public Use
  Company Number: US-ALLERGAN-1670486US

PATIENT
  Age: 27 Year
  Sex: Male
  Weight: 106.3 kg

DRUGS (2)
  1. SIROLIMUS. [Suspect]
     Active Substance: SIROLIMUS
     Indication: HEART TRANSPLANT
     Dosage: UNK
     Route: 048
     Dates: start: 201511, end: 201511
  2. LEXAPRO [Suspect]
     Active Substance: ESCITALOPRAM OXALATE
     Indication: DEPRESSION

REACTIONS (13)
  - Haemorrhagic pneumonia [Recovered/Resolved]
  - Epistaxis [Recovered/Resolved]
  - Thrombocytopenia [Recovered/Resolved]
  - Decreased appetite [Recovered/Resolved]
  - Anaemia [Recovered/Resolved]
  - Hypertension [Recovering/Resolving]
  - Hypotension [Recovered/Resolved]
  - Diastolic dysfunction [Unknown]
  - Abdominal pain upper [Recovered/Resolved]
  - Acne [Recovering/Resolving]
  - Peripheral swelling [Recovered/Resolved]
  - Oliguria [Recovered/Resolved]
  - Nausea [Recovered/Resolved]

NARRATIVE: CASE EVENT DATE: 201511
